FAERS Safety Report 4771518-7 (Version None)
Quarter: 2005Q3

REPORT INFORMATION
  Report Type: 
  Country: None (occurrence: None)
  Receive Date: 20050914
  Receipt Date: 20050914
  Transmission Date: 20060218
  Serious: Yes (Hospitalization)
  Sender: FDA-Public Use
  Company Number: None

PATIENT
  Age: 87 Year
  Sex: Female

DRUGS (7)
  1. WARFARIN SODIUM [Suspect]
     Indication: ATRIAL FIBRILLATION
     Dosage: 2.5 MG DAILY
  2. DIGITEK [Concomitant]
  3. LASIX [Concomitant]
  4. TRAZODONE [Concomitant]
  5. LEXAPRO [Concomitant]
  6. FEMARA [Concomitant]
  7. RANITIDINE [Concomitant]

REACTIONS (2)
  - CONTUSION [None]
  - PROTHROMBIN TIME PROLONGED [None]
